FAERS Safety Report 6802694-X (Version None)
Quarter: 2010Q2

REPORT INFORMATION
  Report Type: 
  Country: None (occurrence: None)
  Receive Date: 20100628
  Receipt Date: 20100617
  Transmission Date: 20101027
  Serious: Yes (Hospitalization)
  Sender: FDA-Public Use
  Company Number: FR-SANOFI-AVENTIS-2010SA016156

PATIENT
  Age: 80 Year
  Sex: Female

DRUGS (7)
  1. CLAFORAN [Suspect]
     Route: 051
     Dates: start: 20100201
  2. TAREG [Concomitant]
     Route: 048
  3. ESOMEPRAZOLE [Concomitant]
     Route: 048
  4. LEXOMIL [Concomitant]
     Route: 048
  5. MEPRONIZINE [Concomitant]
     Route: 048
  6. DOMPERIDONE [Concomitant]
     Route: 048
  7. TARDYFERON /GFR/ [Concomitant]
     Route: 048

REACTIONS (10)
  - ABDOMINAL PAIN [None]
  - ASTHENIA [None]
  - DEHYDRATION [None]
  - DIARRHOEA [None]
  - GENERAL PHYSICAL HEALTH DETERIORATION [None]
  - NAUSEA [None]
  - PALLOR [None]
  - RENAL FAILURE ACUTE [None]
  - TACHYCARDIA [None]
  - VOMITING [None]
